FAERS Safety Report 9282661 (Version 2)
Quarter: 2013Q3

REPORT INFORMATION
  Report Type: Spontaneous
  Country: ES (occurrence: ES)
  Receive Date: 20130510
  Receipt Date: 20130821
  Transmission Date: 20140515
  Serious: Yes (Death, Hospitalization)
  Sender: FDA-Public Use
  Company Number: ES-PFIZER INC-2002138194ES

PATIENT
  Age: 73 Year
  Sex: Female

DRUGS (7)
  1. ANAGASTRA [Suspect]
     Indication: PEPTIC ULCER
     Dosage: 40.0 MG, 1X/DAY
     Route: 048
     Dates: start: 20020717, end: 20020815
  2. METHOTREXATE SODIUM [Interacting]
     Indication: RHEUMATOID ARTHRITIS
     Dosage: 5 MG, WEEKLY
     Route: 048
     Dates: start: 20020725, end: 20020801
  3. SERACTIL [Interacting]
     Indication: RHEUMATOID ARTHRITIS
     Dosage: 300.0 MG, 1X/DAY
     Route: 048
     Dates: start: 20020717, end: 20020805
  4. ARAVA [Interacting]
     Indication: RHEUMATOID ARTHRITIS
     Dosage: 10 MG, 1X/DAY
     Route: 048
     Dates: start: 20020717, end: 20020805
  5. DAONIL [Interacting]
     Indication: DIABETES MELLITUS
     Dosage: 5.0 MG, 1X/DAY
     Route: 048
  6. FIACIN [Interacting]
     Indication: RHEUMATOID ARTHRITIS
     Dosage: 100.0 MG, 1X/DAY
     Route: 054
     Dates: end: 20020805
  7. ZAMENE [Interacting]
     Indication: RHEUMATOID ARTHRITIS
     Dosage: 1.5 MG, 1X/DAY
     Route: 048
     Dates: start: 20020717, end: 20020815

REACTIONS (6)
  - Pancytopenia [Fatal]
  - Aplasia pure red cell [Fatal]
  - Drug interaction [Fatal]
  - Diarrhoea [Unknown]
  - Asthenia [Unknown]
  - General physical health deterioration [Not Recovered/Not Resolved]
